FAERS Safety Report 23143765 (Version 1)
Quarter: 2023Q4

REPORT INFORMATION
  Report Type: Spontaneous
  Country: US (occurrence: None)
  Receive Date: 20231102
  Receipt Date: 20231102
  Transmission Date: 20240110
  Serious: No
  Sender: FDA-Public Use
  Company Number: None

PATIENT

DRUGS (2)
  1. GEMCITABINE HYDROCHLORIDE [Suspect]
     Active Substance: GEMCITABINE HYDROCHLORIDE
  2. CARBOPLATIN [Suspect]
     Active Substance: CARBOPLATIN

REACTIONS (5)
  - Transcription medication error [None]
  - Dose calculation error [None]
  - Accidental overdose [None]
  - Febrile neutropenia [None]
  - Epistaxis [None]
